FAERS Safety Report 19942597 (Version 2)
Quarter: 2021Q4

REPORT INFORMATION
  Report Type: Spontaneous
  Country: US (occurrence: US)
  Receive Date: 20211012
  Receipt Date: 20211109
  Transmission Date: 20220303
  Serious: Yes (Other)
  Sender: FDA-Public Use
  Company Number: US-BAYER-2021A227524

PATIENT
  Age: 36 Year
  Sex: Female
  Weight: 68.844 kg

DRUGS (1)
  1. MIRENA [Suspect]
     Active Substance: LEVONORGESTREL
     Indication: Contraception
     Dosage: 20?G/DAY
     Route: 015
     Dates: start: 20210825, end: 20211006

REACTIONS (4)
  - Embedded device [Recovered/Resolved]
  - Genital haemorrhage [Recovered/Resolved]
  - Abdominal pain lower [Recovered/Resolved]
  - Abdominal pain [Recovered/Resolved]

NARRATIVE: CASE EVENT DATE: 20210101
